FAERS Safety Report 9045529 (Version 1)
Quarter: 2013Q1

REPORT INFORMATION
  Report Type: Report from Study
  Country: US (occurrence: US)
  Receive Date: 20130131
  Receipt Date: 20130131
  Transmission Date: 20140127
  Serious: No
  Sender: FDA-Public Use
  Company Number: US-ABBOTT-12P-163-1005447-00

PATIENT
  Age: 22 Year
  Sex: Female

DRUGS (6)
  1. HUMIRA [Suspect]
     Indication: CROHN^S DISEASE
     Dates: start: 20120816
  2. AMITRIPTYLINE [Concomitant]
     Indication: ABDOMINAL PAIN UPPER
     Dosage: ON AND OFF FOR A FEW YEARS, DEPENDING ON INSURANCE
  3. LYRICA [Concomitant]
     Indication: NEUROPATHY PERIPHERAL
     Dosage: ON AND OFF
     Dates: start: 2009
  4. LIALDA [Concomitant]
     Indication: PRODUCT USED FOR UNKNOWN INDICATION
     Dosage: 4 TABS DAILY
  5. ASACOL [Concomitant]
     Indication: PRODUCT USED FOR UNKNOWN INDICATION
  6. BIRTH CONTROL [Concomitant]
     Indication: PRODUCT USED FOR UNKNOWN INDICATION

REACTIONS (4)
  - Hypersensitivity [Recovering/Resolving]
  - Rectal haemorrhage [Unknown]
  - Drug ineffective [Unknown]
  - Injection site pain [Unknown]
